FAERS Safety Report 10736224 (Version 1)
Quarter: 2015Q1

REPORT INFORMATION
  Report Type: Report from Study
  Country: DE (occurrence: None)
  Receive Date: 20150121
  Receipt Date: 20150121
  Transmission Date: 20150721
  Serious: Yes (Other)
  Sender: FDA-Public Use
  Company Number: 2014SA007024

PATIENT
  Age: 52 Year
  Sex: Female

DRUGS (1)
  1. LEMTRADA [Suspect]
     Active Substance: ALEMTUZUMAB
     Indication: MULTIPLE SCLEROSIS
     Route: 041
     Dates: start: 20131125, end: 20131129

REACTIONS (4)
  - Gait disturbance [None]
  - Balance disorder [None]
  - Drug effect decreased [None]
  - Multiple sclerosis [None]

NARRATIVE: CASE EVENT DATE: 201312
